FAERS Safety Report 4557864-0 (Version None)
Quarter: 2005Q1

REPORT INFORMATION
  Report Type: 
  Country: None (occurrence: None)
  Receive Date: 20050121
  Receipt Date: 20041229
  Transmission Date: 20050727
  Serious: Yes (Death, Hospitalization)
  Sender: FDA-Public Use
  Company Number: 200510000JP

PATIENT
  Age: 80 Year
  Sex: Male

DRUGS (18)
  1. ARAVA [Suspect]
     Indication: RHEUMATOID ARTHRITIS
     Route: 048
     Dates: start: 20040726, end: 20041227
  2. RHEUMATREX [Concomitant]
     Indication: RHEUMATOID ARTHRITIS
     Dosage: DOSE: 4MG/WEEK
     Route: 048
     Dates: start: 20030912, end: 20040725
  3. MEDICON [Concomitant]
     Indication: BRONCHITIS
     Route: 048
     Dates: start: 20040616, end: 20040620
  4. FLOMOX [Concomitant]
     Indication: BRONCHITIS
     Route: 048
     Dates: start: 20040616, end: 20040616
  5. BENET [Concomitant]
     Indication: OSTEOPOROSIS
     Route: 048
     Dates: start: 20040823
  6. VOLTAREN [Concomitant]
     Indication: RHEUMATOID ARTHRITIS
     Route: 048
     Dates: start: 19970228, end: 20041227
  7. CYTOTEC [Concomitant]
     Indication: PROPHYLAXIS AGAINST GASTROINTESTINAL ULCER
     Route: 048
     Dates: start: 19990901, end: 20041227
  8. ALTAT [Concomitant]
     Indication: PROPHYLAXIS AGAINST GASTROINTESTINAL ULCER
     Route: 048
     Dates: start: 20001101, end: 20041227
  9. SELECTOL [Concomitant]
     Indication: HYPERTENSION
     Route: 048
     Dates: end: 20041227
  10. ALDOMET [Concomitant]
     Indication: HYPERTENSION
     Route: 048
     Dates: end: 20041227
  11. MICARDIS [Concomitant]
     Indication: HYPERTENSION
     Route: 048
     Dates: end: 20041227
  12. ATELEC [Concomitant]
     Indication: HYPERTENSION
     Route: 048
     Dates: end: 20041227
  13. LASIX [Concomitant]
     Indication: HYPERTENSION
     Route: 048
     Dates: end: 20041227
  14. LAC B [Concomitant]
     Indication: CONSTIPATION
     Route: 048
     Dates: end: 20041227
  15. SERMION [Concomitant]
     Indication: DIZZINESS
     Dosage: DOSE: 3 TABLETS
     Route: 048
     Dates: start: 20030513, end: 20041227
  16. PREDNISOLONE [Concomitant]
     Indication: RHEUMATOID ARTHRITIS
     Route: 048
     Dates: start: 19960517, end: 20041227
  17. VOLTAREN [Concomitant]
     Indication: RHEUMATOID ARTHRITIS
     Route: 054
     Dates: start: 19980718, end: 20041227
  18. FLUITRAN [Concomitant]
     Indication: HYPERTENSION
     Route: 048
     Dates: start: 20030926, end: 20041227

REACTIONS (6)
  - BLOOD UREA INCREASED [None]
  - CARDIO-RESPIRATORY ARREST [None]
  - INSOMNIA [None]
  - PLATELET COUNT DECREASED [None]
  - PNEUMOCYSTIS JIROVECI PNEUMONIA [None]
  - PNEUMONIA PNEUMOCOCCAL [None]
